FAERS Safety Report 5179057-9 (Version None)
Quarter: 2006Q4

REPORT INFORMATION
  Report Type: 
  Country: None (occurrence: None)
  Receive Date: 20061219
  Receipt Date: 20061114
  Transmission Date: 20070319
  Serious: Yes (Other)
  Sender: FDA-Public Use
  Company Number: US-SHR-US-2006-035501

PATIENT
  Age: 24 Year
  Sex: Female
  Weight: 107 kg

DRUGS (1)
  1. MIRENA [Suspect]
     Indication: CONTRACEPTION
     Dosage: 20 A?G/DAY, CONT
     Route: 015
     Dates: start: 20031126, end: 20040924

REACTIONS (4)
  - AMENORRHOEA [None]
  - ANOVULATORY CYCLE [None]
  - INFERTILITY FEMALE [None]
  - MENOMETRORRHAGIA [None]
